FAERS Safety Report 7994423-1 (Version None)
Quarter: 2011Q4

REPORT INFORMATION
  Report Type: 
  Country: None (occurrence: None)
  Receive Date: 20111220
  Receipt Date: 20111216
  Transmission Date: 20120403
  Serious: Yes (Death)
  Sender: FDA-Public Use
  Company Number: IT-GENZYME-CLOF-1001911

PATIENT
  Sex: Male
  Weight: 85 kg

DRUGS (5)
  1. ETOPOSIDE [Suspect]
     Indication: ACUTE LYMPHOCYTIC LEUKAEMIA
     Dosage: 300 MG, QDX5
     Route: 065
     Dates: start: 20110622, end: 20110626
  2. ACETAMINOPHEN [Concomitant]
     Indication: ANALGESIC THERAPY
     Dosage: 1000 MG, QD
     Route: 042
     Dates: start: 20110622, end: 20110627
  3. CLOFARABINE [Suspect]
     Indication: ACUTE LYMPHOCYTIC LEUKAEMIA
     Dosage: 200 MG/M2 DOSE. 80 MG, QDX5
     Route: 065
     Dates: start: 20110622, end: 20110626
  4. ACYCLOVIR [Concomitant]
     Indication: ANTIVIRAL PROPHYLAXIS
     Dosage: 800 MG, TID
     Route: 048
     Dates: start: 20110630, end: 20110708
  5. LEVOFLOXACIN [Concomitant]
     Indication: ANTIBIOTIC PROPHYLAXIS
     Dosage: 500 MG, QD
     Route: 048
     Dates: start: 20110622, end: 20110708

REACTIONS (1)
  - DEATH [None]
